FAERS Safety Report 5273821-3 (Version None)
Quarter: 2007Q1

REPORT INFORMATION
  Report Type: 
  Country: None (occurrence: None)
  Receive Date: 20070323
  Receipt Date: 20070321
  Transmission Date: 20070707
  Serious: Yes (Other)
  Sender: FDA-Public Use
  Company Number: US-BRISTOL-MYERS SQUIBB COMPANY-13556964

PATIENT
  Age: 5 Year
  Sex: Male

DRUGS (8)
  1. VINCRISTINE SULFATE [Suspect]
     Indication: PRIMITIVE NEUROECTODERMAL TUMOUR
  2. CYCLOPHOSPHAMIDE [Suspect]
     Indication: PRIMITIVE NEUROECTODERMAL TUMOUR
     Route: 042
  3. CARBOPLATIN [Suspect]
     Indication: PRIMITIVE NEUROECTODERMAL TUMOUR
     Route: 042
  4. ETOPOSIDE [Suspect]
     Indication: PRIMITIVE NEUROECTODERMAL TUMOUR
  5. RADIOTHERAPY [Concomitant]
     Indication: PRIMITIVE NEUROECTODERMAL TUMOUR
  6. THIOTEPA [Concomitant]
     Indication: PRIMITIVE NEUROECTODERMAL TUMOUR
  7. GRANULOCYTE CSF [Concomitant]
     Indication: PRIMITIVE NEUROECTODERMAL TUMOUR
  8. HEMATOPOETIC PROGENITOR CELLS HUMAN [Concomitant]
     Indication: PRIMITIVE NEUROECTODERMAL TUMOUR

REACTIONS (1)
  - MYELITIS [None]
